FAERS Safety Report 21054400 (Version 1)
Quarter: 2022Q3

REPORT INFORMATION
  Report Type: Spontaneous
  Country: SE (occurrence: SE)
  Receive Date: 20220707
  Receipt Date: 20220707
  Transmission Date: 20221026
  Serious: Yes (Disabling)
  Sender: FDA-Public Use
  Company Number: SE-MPA-2022-016583

PATIENT
  Age: 61 Year
  Sex: Male

DRUGS (1)
  1. ROPIVACAINE HYDROCHLORIDE [Suspect]
     Active Substance: ROPIVACAINE HYDROCHLORIDE
     Indication: Postoperative analgesia
     Dosage: 10 MG/ML 2 MG/ML, 5 ML I BOLUS, INFUSION 4-10 ML/T
     Route: 008
     Dates: start: 20211129, end: 20211130

REACTIONS (2)
  - Paraparesis [Not Recovered/Not Resolved]
  - Radiculopathy [Not Recovered/Not Resolved]

NARRATIVE: CASE EVENT DATE: 20211130
